FAERS Safety Report 5235441-6 (Version None)
Quarter: 2007Q1

REPORT INFORMATION
  Report Type: 
  Country: None (occurrence: None)
  Receive Date: 20070208
  Receipt Date: 20070208
  Transmission Date: 20070707
  Serious: Yes (Hospitalization)
  Sender: FDA-Public Use
  Company Number: None

PATIENT
  Sex: Female
  Weight: 66.4 kg

DRUGS (10)
  1. CISPLATIN [Suspect]
     Indication: CERVIX CARCINOMA
     Dosage: 44 MG
  2. TAXOL [Suspect]
     Dosage: 235 MG
  3. ALBUTEROL [Concomitant]
  4. ATIVAN [Concomitant]
  5. EMEND [Concomitant]
  6. MACRODANTIN [Concomitant]
  7. MAGNESIUM TABLETS [Concomitant]
  8. PHENERGAN [Concomitant]
  9. POTASSIUM CHLORIDE [Concomitant]
  10. TESSALON [Concomitant]

REACTIONS (5)
  - ELECTROLYTE IMBALANCE [None]
  - FATIGUE [None]
  - HYPOTENSION [None]
  - MUSCLE SPASMS [None]
  - URINARY TRACT INFECTION [None]
